FAERS Safety Report 14416823 (Version 1)
Quarter: 2018Q1

REPORT INFORMATION
  Report Type: Spontaneous
  Country: US (occurrence: US)
  Receive Date: 20180119
  Receipt Date: 20180119
  Transmission Date: 20180509
  Serious: Yes (Hospitalization)
  Sender: FDA-Public Use
  Company Number: None

PATIENT
  Age: 56 Year
  Sex: Female

DRUGS (36)
  1. CYCLOSPORINE. [Concomitant]
     Active Substance: CYCLOSPORINE
  2. FUROSEMIDE. [Concomitant]
     Active Substance: FUROSEMIDE
  3. PROPOFOL. [Suspect]
     Active Substance: PROPOFOL
     Indication: SEDATION
     Dosage: 45 MCG/KG/MIN CONTINUOUS IV
     Route: 042
     Dates: start: 20170801, end: 20170807
  4. FAMOTIDINE. [Concomitant]
     Active Substance: FAMOTIDINE
  5. HYDROCORTISONE. [Concomitant]
     Active Substance: HYDROCORTISONE
  6. EPINEPHRINE. [Concomitant]
     Active Substance: EPINEPHRINE
  7. POTASSIUM CHLORIDE. [Concomitant]
     Active Substance: POTASSIUM CHLORIDE
  8. ARTIFICIAL TEARS [Concomitant]
     Active Substance: GLYCERIN\HYPROMELLOSES\POLYETHYLENE GLYCOL 400
  9. CHLOROTHIAZIDE. [Concomitant]
     Active Substance: CHLOROTHIAZIDE
  10. HEPARIN [Concomitant]
     Active Substance: HEPARIN SODIUM
  11. HYDRALAZINE [Concomitant]
     Active Substance: HYDRALAZINE HYDROCHLORIDE
  12. INSULIN REGULAR [Concomitant]
     Active Substance: INSULIN NOS
  13. MILRINONE [Concomitant]
     Active Substance: MILRINONE
  14. MULTIVITAMIN [Concomitant]
     Active Substance: VITAMINS
  15. POSACONAZOLE [Concomitant]
     Active Substance: POSACONAZOLE
  16. ATORVASTATIN [Concomitant]
     Active Substance: ATORVASTATIN
  17. ATOVAQUONE. [Concomitant]
     Active Substance: ATOVAQUONE
  18. CEFEPIME [Concomitant]
     Active Substance: CEFEPIME HYDROCHLORIDE
  19. FERROUS SULFATE. [Concomitant]
     Active Substance: FERROUS SULFATE
  20. LIDOCAINE. [Concomitant]
     Active Substance: LIDOCAINE
  21. LORAZAPAM [Concomitant]
     Active Substance: LORAZEPAM
  22. MAGNESIUM SULFATE. [Concomitant]
     Active Substance: MAGNESIUM SULFATE
  23. POLYETHYLENE GLYCOL 3350. [Concomitant]
     Active Substance: POLYETHYLENE GLYCOL 3350
  24. VALGANCICLOVIR. [Concomitant]
     Active Substance: VALGANCICLOVIR
  25. ACETAMINOPHEN. [Concomitant]
     Active Substance: ACETAMINOPHEN
  26. ALBUTEROL. [Concomitant]
     Active Substance: ALBUTEROL
  27. FENTANYL. [Concomitant]
     Active Substance: FENTANYL
  28. INSULIN ASPART [Concomitant]
     Active Substance: INSULIN ASPART
  29. LEVOTHYROXINE. [Concomitant]
     Active Substance: LEVOTHYROXINE
  30. ASCORBIC ACID. [Concomitant]
     Active Substance: ASCORBIC ACID
  31. HYDROMORPHONE [Concomitant]
     Active Substance: HYDROMORPHONE
  32. METOPROLOL. [Concomitant]
     Active Substance: METOPROLOL
  33. VITAMIN D [Concomitant]
     Active Substance: CHOLECALCIFEROL
  34. AZATHIOPRINE. [Concomitant]
     Active Substance: AZATHIOPRINE
  35. CALCIUM CARBONATE. [Concomitant]
     Active Substance: CALCIUM CARBONATE
  36. CHLORHEXADINE [Concomitant]
     Active Substance: CHLORHEXIDINE

REACTIONS (5)
  - Lipase increased [None]
  - Propofol infusion syndrome [None]
  - Haemoglobin abnormal [None]
  - Hypertriglyceridaemia [None]
  - Blood creatine phosphokinase increased [None]

NARRATIVE: CASE EVENT DATE: 20170807
